FAERS Safety Report 9120792 (Version 1)
Quarter: 2013Q1

REPORT INFORMATION
  Report Type: Spontaneous
  Country: None (occurrence: US)
  Receive Date: 20130226
  Receipt Date: 20130226
  Transmission Date: 20140127
  Serious: No
  Sender: FDA-Public Use
  Company Number: US-TARO-2012P1041992

PATIENT
  Sex: Female
  Weight: 79.38 kg

DRUGS (4)
  1. NYSTATIN [Suspect]
     Route: 061
     Dates: start: 201206, end: 201206
  2. TERCONAZOLE VAGINAL CREAM 0.8% [Suspect]
     Route: 061
     Dates: start: 201206, end: 201206
  3. SYNTHROID [Concomitant]
     Indication: HYPOTHYROIDISM
     Route: 048
  4. LIPITOR [Concomitant]
     Indication: BLOOD CHOLESTEROL INCREASED
     Route: 048

REACTIONS (2)
  - Vulvovaginal pruritus [Recovered/Resolved]
  - Vulvovaginal rash [Recovered/Resolved]
